FAERS Safety Report 13540349 (Version 5)
Quarter: 2018Q3

REPORT INFORMATION
  Report Type: Spontaneous
  Country: RU (occurrence: RU)
  Receive Date: 20170512
  Receipt Date: 20180820
  Transmission Date: 20181010
  Serious: Yes (Life-Threatening, Hospitalization)
  Sender: FDA-Public Use
  Company Number: RU-ASTRAZENECA-2017SE49330

PATIENT
  Age: 67 Year
  Sex: Female
  Weight: 78 kg

DRUGS (15)
  1. BRILINTA [Suspect]
     Active Substance: TICAGRELOR
     Indication: MYOCARDIAL INFARCTION
     Route: 048
     Dates: start: 20160921
  2. VEROSPIRON [Concomitant]
     Active Substance: SPIRONOLACTONE
  3. RIBOXIN [Concomitant]
     Active Substance: INOSINE
  4. BRILINTA [Suspect]
     Active Substance: TICAGRELOR
     Indication: MYOCARDIAL INFARCTION
     Dosage: HALF TABLET TWO TIMES A DAY
     Route: 048
     Dates: start: 2018
  5. DIROTON [Concomitant]
     Active Substance: LISINOPRIL
  6. AMLODIPIN [Concomitant]
     Active Substance: AMLODIPINE BESYLATE
  7. SORBIFER DURULES [Concomitant]
     Active Substance: FERROUS SULFATE
  8. ATORVASTATIN [Concomitant]
     Active Substance: ATORVASTATIN
  9. SIOFOR [Concomitant]
     Active Substance: METFORMIN HYDROCHLORIDE
  10. CARDIOMAGNYL [Concomitant]
     Active Substance: ASPIRIN\MAGNESIUM HYDROXIDE
  11. METOPROLOL. [Concomitant]
     Active Substance: METOPROLOL
  12. NOLPAZA [Concomitant]
     Active Substance: PANTOPRAZOLE SODIUM
  13. VITAMIN D [Concomitant]
     Active Substance: CHOLECALCIFEROL
  14. BISOPROLOL [Concomitant]
     Active Substance: BISOPROLOL
  15. ENALAPRIL [Concomitant]
     Active Substance: ENALAPRIL

REACTIONS (11)
  - Vascular stent stenosis [Recovered/Resolved]
  - Myocardial infarction [Recovered/Resolved]
  - Bradycardia [Recovered/Resolved]
  - Intentional product misuse [Not Recovered/Not Resolved]
  - Haemoglobin decreased [Not Recovered/Not Resolved]
  - Pyrexia [Unknown]
  - Dyspnoea [Not Recovered/Not Resolved]
  - Dyspnoea exertional [Recovered/Resolved]
  - Contusion [Recovered/Resolved]
  - Abdominal distension [Not Recovered/Not Resolved]
  - Blood glucose increased [Unknown]

NARRATIVE: CASE EVENT DATE: 20161005
